FAERS Safety Report 7491094-8 (Version None)
Quarter: 2011Q2

REPORT INFORMATION
  Report Type: 
  Country: None (occurrence: None)
  Receive Date: 20110518
  Receipt Date: 20110518
  Transmission Date: 20111010
  Serious: Yes (Life-Threatening, Hospitalization)
  Sender: FDA-Public Use
  Company Number: None

PATIENT
  Age: 41 Year
  Sex: Male
  Weight: 131.5431 kg

DRUGS (3)
  1. TRAMADOL HYDROCHLORIDE [Suspect]
     Indication: PAIN
     Dosage: 1 TABLET EVERY 6 HOURS
     Dates: start: 20110508, end: 20110509
  2. TRAMADOL HYDROCHLORIDE [Suspect]
     Indication: ACCIDENT
     Dosage: 1 TABLET EVERY 6 HOURS
     Dates: start: 20110508, end: 20110509
  3. TRAMADOL HYDROCHLORIDE [Suspect]
     Indication: INJURY
     Dosage: 1 TABLET EVERY 6 HOURS
     Dates: start: 20110508, end: 20110509

REACTIONS (6)
  - DRY MOUTH [None]
  - DYSGEUSIA [None]
  - MIDDLE INSOMNIA [None]
  - MUSCLE SPASMS [None]
  - FEELING HOT [None]
  - DYSPNOEA [None]
